FAERS Safety Report 9458986 (Version 1)
Quarter: 2013Q3

REPORT INFORMATION
  Report Type: Spontaneous
  Country: US (occurrence: US)
  Receive Date: 20130814
  Receipt Date: 20130814
  Transmission Date: 20140515
  Serious: No
  Sender: FDA-Public Use
  Company Number: US-009507513-1308USA004271

PATIENT
  Sex: Male

DRUGS (2)
  1. DR. SCHOLL^S ODOR DESTROYERS ALL DAY DEODORANT POWDER [Suspect]
     Indication: PRODUCT USED FOR UNKNOWN INDICATION
     Dosage: UNK, UNKNOWN
     Route: 061
  2. DR. SCHOLL^S ODOR DESTROYERS ALL DAY DEODORANT POWDER [Suspect]
     Dosage: UNK, UNKNOWN

REACTIONS (2)
  - Circumstance or information capable of leading to medication error [Unknown]
  - Product expiration date issue [Unknown]
